FAERS Safety Report 24104037 (Version 1)
Quarter: 2024Q3

REPORT INFORMATION
  Report Type: Spontaneous
  Country: IT (occurrence: IT)
  Receive Date: 20240717
  Receipt Date: 20240717
  Transmission Date: 20241017
  Serious: Yes (Other)
  Sender: ACCORD
  Company Number: None

PATIENT
  Age: 54 Year
  Sex: Male

DRUGS (4)
  1. OXALIPLATIN [Suspect]
     Active Substance: OXALIPLATIN
     Indication: Gastric cancer
     Dosage: 210 MG
     Dates: start: 20240606, end: 20240606
  2. CAPECITABINE [Concomitant]
     Active Substance: CAPECITABINE
     Dosage: 3000 MG/DAY FOR 14 DAYS FOLLOWED BY A WEEK^S BREAK
     Dates: start: 20240611
  3. TRASTUZUMAB [Concomitant]
     Active Substance: TRASTUZUMAB
     Indication: Gastric cancer
     Dosage: 450 MG
     Dates: start: 20240606
  4. PEMBROLIZUMAB [Concomitant]
     Active Substance: PEMBROLIZUMAB
     Dosage: 200 MG
     Dates: start: 20240606

REACTIONS (1)
  - Sensitisation [Recovering/Resolving]

NARRATIVE: CASE EVENT DATE: 20240606
